FAERS Safety Report 7731941-5 (Version None)
Quarter: 2011Q3

REPORT INFORMATION
  Report Type: 
  Country: None (occurrence: None)
  Receive Date: 20110906
  Receipt Date: 20110714
  Transmission Date: 20111222
  Serious: No
  Sender: FDA-Public Use
  Company Number: US-AMGEN-USASP2011035904

PATIENT
  Sex: Female
  Weight: 42.177 kg

DRUGS (3)
  1. CALCIUM CARBONATE [Concomitant]
  2. VITAMIN D [Concomitant]
     Dosage: UNK
  3. PROLIA [Suspect]
     Indication: OSTEOPOROSIS POSTMENOPAUSAL
     Dosage: 60 MG, Q6MO
     Dates: start: 20110513

REACTIONS (3)
  - WEIGHT DECREASED [None]
  - UPPER RESPIRATORY TRACT INFECTION [None]
  - PYREXIA [None]
